FAERS Safety Report 24167936 (Version 1)
Quarter: 2024Q3

REPORT INFORMATION
  Report Type: Spontaneous
  Country: US (occurrence: None)
  Receive Date: 20240801
  Receipt Date: 20240801
  Transmission Date: 20241017
  Serious: Yes (Death)
  Sender: Public
  Company Number: None

PATIENT
  Age: 68 Year
  Sex: Female
  Weight: 56.7 kg

DRUGS (16)
  1. ZARXIO [Suspect]
     Active Substance: FILGRASTIM-SNDZ
     Indication: Agranulocytosis
     Dosage: OTHER FREQUENCY : DAILY SATURDAY + SUNDAY ONLY;?
     Route: 058
     Dates: start: 20240608
  2. ELIQUIS [Concomitant]
     Active Substance: APIXABAN
  3. EFFEXOR XR [Concomitant]
     Active Substance: VENLAFAXINE HYDROCHLORIDE
  4. LASIX [Concomitant]
     Active Substance: FUROSEMIDE
  5. NORCO [Concomitant]
  6. NARCAN [Concomitant]
  7. LACTULOSE [Concomitant]
  8. SYNTHROID [Concomitant]
  9. LORAZEPAM [Concomitant]
  10. METHADONE [Concomitant]
  11. POTASSIUM CHLORIDE [Concomitant]
     Active Substance: POTASSIUM CHLORIDE
  12. LYRICA [Concomitant]
     Active Substance: PREGABALIN
  13. SENOKOT [Concomitant]
  14. GEMZAR [Concomitant]
     Active Substance: GEMCITABINE HYDROCHLORIDE
  15. ZOMETA [Concomitant]
     Active Substance: ZOLEDRONIC ACID
  16. DEXAMETHASONE [Concomitant]

REACTIONS (6)
  - Disease progression [None]
  - Metastases to thyroid [None]
  - Metastases to liver [None]
  - Metastases to uterus [None]
  - Intestinal metastasis [None]
  - Breast cancer metastatic [None]

NARRATIVE: CASE EVENT DATE: 20240726
